FAERS Safety Report 18079972 (Version 1)
Quarter: 2020Q3

REPORT INFORMATION
  Report Type: Spontaneous
  Country: US (occurrence: US)
  Receive Date: 20200728
  Receipt Date: 20200728
  Transmission Date: 20201103
  Serious: Yes (Other)
  Sender: FDA-Public Use
  Company Number: US-STRIDES ARCOLAB LIMITED-2020SP004575

PATIENT
  Age: 58 Year
  Sex: Male

DRUGS (3)
  1. TACROLIMUS. [Suspect]
     Active Substance: TACROLIMUS
     Indication: RENAL TRANSPLANT
     Dosage: UNK
     Route: 065
  2. PREDNISOLONE. [Suspect]
     Active Substance: PREDNISOLONE
     Indication: RENAL TRANSPLANT
     Dosage: UNK
     Route: 065
  3. MYCOPHENOLATE MOFETIL. [Suspect]
     Active Substance: MYCOPHENOLATE MOFETIL
     Indication: RENAL TRANSPLANT
     Dosage: UNK
     Route: 065

REACTIONS (13)
  - Necrotising fasciitis [Recovered/Resolved]
  - Peripheral swelling [Recovered/Resolved]
  - Histoplasmosis cutaneous [Recovered/Resolved]
  - Purulence [Recovered/Resolved]
  - Pain in extremity [Recovered/Resolved]
  - Skin lesion [Recovered/Resolved]
  - Fatigue [Unknown]
  - Weight decreased [Unknown]
  - Granuloma [Recovered/Resolved]
  - Cellulitis [Recovered/Resolved]
  - Skin odour abnormal [Recovered/Resolved]
  - Soft tissue necrosis [Recovered/Resolved]
  - Myositis [Recovered/Resolved]
